FAERS Safety Report 5890929-X (Version None)
Quarter: 2008Q3

REPORT INFORMATION
  Report Type: 
  Country: None (occurrence: None)
  Receive Date: 20080922
  Receipt Date: 20080912
  Transmission Date: 20090109
  Serious: Yes (Hospitalization)
  Sender: FDA-Public Use
  Company Number: A0731831A

PATIENT
  Age: 48 Year
  Sex: Male
  Weight: 111.4 kg

DRUGS (1)
  1. AVANDIA [Suspect]
     Indication: DIABETES MELLITUS
     Route: 048
     Dates: start: 19990101, end: 20010101

REACTIONS (3)
  - CARDIAC VALVE DISEASE [None]
  - HEART INJURY [None]
  - MYOCARDIAL INFARCTION [None]
